FAERS Safety Report 21072051 (Version 1)
Quarter: 2022Q3

REPORT INFORMATION
  Report Type: Spontaneous
  Country: US (occurrence: US)
  Receive Date: 20220712
  Receipt Date: 20220712
  Transmission Date: 20221027
  Serious: Yes (Other)
  Sender: FDA-Public Use
  Company Number: US-NOVOPROD-891779

PATIENT
  Age: 66 Year
  Sex: Female

DRUGS (2)
  1. RYBELSUS [Suspect]
     Active Substance: SEMAGLUTIDE
     Indication: Product used for unknown indication
     Dosage: UNK
     Route: 048
     Dates: start: 20210822, end: 202110
  2. RYBELSUS [Suspect]
     Active Substance: SEMAGLUTIDE
     Dosage: 7 MG
     Route: 048
     Dates: start: 202110, end: 20211120

REACTIONS (3)
  - Pancreatitis [Recovering/Resolving]
  - Gastrointestinal disorder [Unknown]
  - Flatulence [Unknown]

NARRATIVE: CASE EVENT DATE: 20210101
